FAERS Safety Report 10913341 (Version 1)
Quarter: 2015Q1

REPORT INFORMATION
  Report Type: Spontaneous
  Country: US (occurrence: None)
  Receive Date: 20150310
  Receipt Date: 20150310
  Transmission Date: 20150721
  Serious: Yes (Other)
  Sender: FDA-Public Use
  Company Number: None

PATIENT

DRUGS (2)
  1. NEURONTIN GENERIC [Suspect]
     Active Substance: GABAPENTIN
     Indication: PERIPHERAL NERVE DECOMPRESSION
  2. TRILEPTAL GENERIC [Suspect]
     Active Substance: OXCARBAZEPINE
     Indication: GLOSSOPHARYNGEAL NEURALGIA

REACTIONS (4)
  - Dizziness [None]
  - Rash [None]
  - Product substitution issue [None]
  - Seizure [None]
